FAERS Safety Report 23990502 (Version 1)
Quarter: 2024Q2

REPORT INFORMATION
  Report Type: Spontaneous
  Country: US (occurrence: US)
  Receive Date: 20240619
  Receipt Date: 20240619
  Transmission Date: 20240716
  Serious: No
  Sender: FDA-Public Use
  Company Number: US-BRISTOL-MYERS SQUIBB COMPANY-2024-098064

PATIENT
  Age: 29 Year
  Sex: Female

DRUGS (1)
  1. ZEPOSIA [Suspect]
     Active Substance: OZANIMOD HYDROCHLORIDE
     Indication: Multiple sclerosis
     Dosage: FREQUENCY-DAILY
     Route: 048
     Dates: start: 20230811

REACTIONS (4)
  - Insurance issue [Unknown]
  - Eczema [Unknown]
  - Therapy interrupted [Unknown]
  - Eye disorder [Recovered/Resolved]
